FAERS Safety Report 17155313 (Version 1)
Quarter: 2019Q4

REPORT INFORMATION
  Report Type: Spontaneous
  Country: CN (occurrence: CN)
  Receive Date: 20191215
  Receipt Date: 20191215
  Transmission Date: 20200122
  Serious: Yes (Death)
  Sender: FDA-Public Use
  Company Number: CN-B.I. PHARMACEUTICALS,INC./RIDGEFIELD-2019-BI-119714

PATIENT
  Age: 73 Year
  Sex: Male

DRUGS (6)
  1. SUNITINIB [Concomitant]
     Active Substance: SUNITINIB
     Indication: PRODUCT USED FOR UNKNOWN INDICATION
     Route: 065
  2. ERLOTINIB [Concomitant]
     Active Substance: ERLOTINIB
     Indication: PRODUCT USED FOR UNKNOWN INDICATION
     Route: 065
  3. DACOMITINIB [Concomitant]
     Active Substance: DACOMITINIB
     Indication: PRODUCT USED FOR UNKNOWN INDICATION
     Route: 065
  4. OSIMERTINIB. [Concomitant]
     Active Substance: OSIMERTINIB
     Indication: PRODUCT USED FOR UNKNOWN INDICATION
     Route: 065
  5. GILOTRIF [Suspect]
     Active Substance: AFATINIB
     Indication: HEPATIC LESION
  6. GILOTRIF [Suspect]
     Active Substance: AFATINIB
     Indication: CHOLANGIOCARCINOMA
     Route: 065

REACTIONS (2)
  - Malignant neoplasm progression [Fatal]
  - Jaundice cholestatic [Unknown]
